FAERS Safety Report 7853361-5 (Version None)
Quarter: 2011Q4

REPORT INFORMATION
  Report Type: 
  Country: None (occurrence: None)
  Receive Date: 20111026
  Receipt Date: 20111019
  Transmission Date: 20120403
  Serious: Yes (Hospitalization)
  Sender: FDA-Public Use
  Company Number: GB-TEVA-305770ISR

PATIENT
  Age: 46 Year

DRUGS (5)
  1. GABAPENTIN [Suspect]
  2. BENZODIAZEPINE [Suspect]
  3. MORPHINE [Suspect]
  4. HALOPERIDOL [Suspect]
  5. PROPOFOL [Suspect]
     Dosage: AT DOSES HIGHER THAN 4 MG/(KG H) FOR MORE THAN 48 H
     Route: 042

REACTIONS (3)
  - RHABDOMYOLYSIS [None]
  - SEPSIS [None]
  - HYPOPHOSPHATAEMIA [None]
